FAERS Safety Report 20152849 (Version 6)
Quarter: 2023Q1

REPORT INFORMATION
  Report Type: Report from Study
  Country: DE (occurrence: DE)
  Receive Date: 20211206
  Receipt Date: 20230308
  Transmission Date: 20230418
  Serious: Yes (Hospitalization)
  Sender: FDA-Public Use
  Company Number: DE-GLAXOSMITHKLINE-DE2021238363

PATIENT

DRUGS (16)
  1. BELANTAMAB MAFODOTIN [Suspect]
     Active Substance: BELANTAMAB MAFODOTIN
     Indication: Plasma cell myeloma
     Dosage: 202.50 MG, CYC (2.5 MG/KG)
     Route: 042
     Dates: start: 20210528, end: 20210528
  2. BELANTAMAB MAFODOTIN [Suspect]
     Active Substance: BELANTAMAB MAFODOTIN
     Dosage: 202.50 MG, CYC (2.5 MG/KG)
     Route: 042
     Dates: start: 20210618, end: 20210618
  3. BELANTAMAB MAFODOTIN [Suspect]
     Active Substance: BELANTAMAB MAFODOTIN
     Dosage: 153.90 MG, CYC (1.9 MG/KG)
     Route: 042
     Dates: start: 20211022
  4. BORTEZOMIB [Suspect]
     Active Substance: BORTEZOMIB
     Indication: Plasma cell myeloma
     Dosage: 2.51 MG, CYC
     Route: 058
     Dates: start: 20210528, end: 20210601
  5. BORTEZOMIB [Suspect]
     Active Substance: BORTEZOMIB
     Dosage: 2.51 MG, CYC
     Route: 058
     Dates: start: 20210618, end: 20210719
  6. BORTEZOMIB [Suspect]
     Active Substance: BORTEZOMIB
     Dosage: 1.93 MG, CYC
     Route: 058
     Dates: start: 20210820, end: 20210920
  7. BORTEZOMIB [Suspect]
     Active Substance: BORTEZOMIB
     Dosage: 1.93 MG, CYC
     Route: 058
     Dates: start: 20211004, end: 20211025
  8. BORTEZOMIB [Suspect]
     Active Substance: BORTEZOMIB
     Dosage: 1.94 MG, CYC
     Route: 058
     Dates: start: 20211029
  9. DEXAMETHASONE [Suspect]
     Active Substance: DEXAMETHASONE
     Indication: Plasma cell myeloma
     Dosage: 20 MG, CYC (DAY 1 OF 16 DAY CYCLE)
     Route: 048
     Dates: start: 20210528, end: 20210528
  10. DEXAMETHASONE [Suspect]
     Active Substance: DEXAMETHASONE
     Dosage: 10 MG, CYC (DAY 2 OF 16 DAY CYCLE)
     Route: 048
     Dates: start: 20210529, end: 20210529
  11. DEXAMETHASONE [Suspect]
     Active Substance: DEXAMETHASONE
     Dosage: 20 MG, CYC (DAY 4, 5 AND 8 OF 16 DAY CYCLE)
     Route: 048
     Dates: start: 20210531, end: 20210604
  12. DEXAMETHASONE [Suspect]
     Active Substance: DEXAMETHASONE
     Dosage: 20 MG, CYC (DAY 11, 12, 15 AND 16 OF 16 DAY CYCLE)
     Route: 048
     Dates: start: 20210607, end: 20210612
  13. DEXAMETHASONE [Suspect]
     Active Substance: DEXAMETHASONE
     Dosage: 20 MG, CYC (DAY 1, 2, 4, 5, 8, 9, 11, 12, 15 AND 16 OF 16 DAY CYCLE)
     Route: 048
     Dates: start: 20210618, end: 20210828
  14. DEXAMETHASONE [Suspect]
     Active Substance: DEXAMETHASONE
     Dosage: 20 MG, CYC (DAY 1, 2, 4, 5, 8, 9, 11, 12, 15 AND 16 OF 16 DAY CYCLE)
     Route: 048
     Dates: start: 20210910, end: 20210921
  15. DEXAMETHASONE [Suspect]
     Active Substance: DEXAMETHASONE
     Dosage: 20 MG, CYC (DAY 4, 5, 8, 9, 11 AND 12 OF 16 DAY CYCLE)
     Route: 048
     Dates: start: 20211004, end: 20211012
  16. DEXAMETHASONE [Suspect]
     Active Substance: DEXAMETHASONE
     Dosage: 20 MG, CYC (DAY 1, 2, 4, 5, 8, 9, 11 AND 12 OF 16 DAY CYCLE)
     Route: 048
     Dates: start: 20211022

REACTIONS (1)
  - COVID-19 [Recovered/Resolved with Sequelae]

NARRATIVE: CASE EVENT DATE: 20211118
